FAERS Safety Report 9827167 (Version 1)
Quarter: 2014Q1

REPORT INFORMATION
  Report Type: Spontaneous
  Country: US (occurrence: US)
  Receive Date: 20140117
  Receipt Date: 20140117
  Transmission Date: 20141002
  Serious: No
  Sender: FDA-Public Use
  Company Number: US-009507513-1401USA004158

PATIENT
  Sex: Male

DRUGS (2)
  1. CLARITIN [Suspect]
     Indication: SNEEZING
     Dosage: UNK, UNKNOWN
     Route: 048
     Dates: start: 20131223
  2. CLARITIN [Suspect]
     Indication: RHINORRHOEA

REACTIONS (1)
  - Drug ineffective [Unknown]
